FAERS Safety Report 24817847 (Version 1)
Quarter: 2025Q1

REPORT INFORMATION
  Report Type: Spontaneous
  Country: US (occurrence: US)
  Receive Date: 20250108
  Receipt Date: 20250108
  Transmission Date: 20250408
  Serious: Yes (Hospitalization, Other)
  Sender: GLAND PHARMA LTD
  Company Number: US-GLANDPHARMA-US-2024GLNLIT01336

PATIENT
  Age: 3 Month
  Sex: Male

DRUGS (4)
  1. AMIODARONE HYDROCHLORIDE [Suspect]
     Active Substance: AMIODARONE HYDROCHLORIDE
     Indication: Supraventricular tachycardia
     Route: 065
  2. FLECAINIDE [Suspect]
     Active Substance: FLECAINIDE
     Indication: Supraventricular tachycardia
     Route: 065
  3. FLECAINIDE [Suspect]
     Active Substance: FLECAINIDE
     Route: 065
  4. ADENOSINE [Concomitant]
     Active Substance: ADENOSINE
     Route: 065

REACTIONS (8)
  - Respiratory distress [Unknown]
  - Electrocardiogram QRS complex prolonged [Recovering/Resolving]
  - Metabolic acidosis [Unknown]
  - Toxicity to various agents [Unknown]
  - Drug interaction [Unknown]
  - Lethargy [Unknown]
  - Hypophagia [Unknown]
  - Bradycardia [Recovering/Resolving]
